FAERS Safety Report 5835431-6 (Version None)
Quarter: 2008Q3

REPORT INFORMATION
  Report Type: 
  Country: None (occurrence: None)
  Receive Date: 20080804
  Receipt Date: 20080725
  Transmission Date: 20090109
  Serious: Yes (Hospitalization)
  Sender: FDA-Public Use
  Company Number: 2006BI010261

PATIENT
  Age: 53 Year
  Sex: Female

DRUGS (1)
  1. AVONEX [Suspect]
     Indication: MULTIPLE SCLEROSIS
     Dosage: 30 UG;QW;IM
     Route: 030
     Dates: start: 19991206

REACTIONS (5)
  - ASTHENIA [None]
  - HAEMOGLOBIN DECREASED [None]
  - HYSTERECTOMY [None]
  - POST PROCEDURAL COMPLICATION [None]
  - PRESYNCOPE [None]
